FAERS Safety Report 8846086 (Version 1)
Quarter: 2012Q4

REPORT INFORMATION
  Report Type: 
  Country: JP (occurrence: JP)
  Receive Date: 20121017
  Receipt Date: 20121017
  Transmission Date: 20130627
  Serious: Yes (Other)
  Sender: FDA-Public Use
  Company Number: JP-TEVA-363915ISR

PATIENT
  Age: 8 None
  Sex: Male

DRUGS (4)
  1. PREDNISOLONE [Suspect]
     Indication: AUTOIMMUNE PANCREATITIS
     Dosage: 40 Milligram Daily; 40 mg/d; then tapered at recommended pitch
     Route: 048
     Dates: start: 200705
  2. PREDNISOLONE [Suspect]
     Indication: AUTOIMMUNE PANCREATITIS
     Dosage: 5 Milligram Daily;
     Route: 048
     Dates: start: 200705
  3. PREDNISOLONE [Suspect]
     Indication: AUTOIMMUNE PANCREATITIS
     Dosage: 15 Milligram Daily;
     Route: 048
     Dates: start: 200705
  4. WARFARIN [Concomitant]
     Indication: MYOCARDIAL INFARCTION
     Route: 065

REACTIONS (4)
  - Bladder transitional cell carcinoma recurrent [Fatal]
  - Dry skin [Unknown]
  - Back pain [Unknown]
  - Muscular weakness [Unknown]
